FAERS Safety Report 8966220 (Version 3)
Quarter: 2012Q4

REPORT INFORMATION
  Report Type: 
  Country: NL (occurrence: NL)
  Receive Date: 20121217
  Receipt Date: 20121227
  Transmission Date: 20130627
  Serious: Yes (Other)
  Sender: FDA-Public Use
  Company Number: NL-PFIZER INC-2012309953

PATIENT
  Age: 51 Year
  Sex: Male

DRUGS (4)
  1. ARGANOVA [Suspect]
     Indication: HEPARIN-INDUCED THROMBOCYTOPENIA TYPE II
     Dosage: 250 mcg/kg bolus
     Route: 042
     Dates: start: 20120904, end: 20120904
  2. ARGANOVA [Suspect]
     Dosage: 2 mcg/kg/min (during 3 hours of 4 hours dialysis)
     Route: 042
     Dates: start: 20120904
  3. ARGANOVA [Suspect]
     Dosage: UNK
     Route: 042
     Dates: start: 20121211
  4. TAVEGIL [Concomitant]
     Indication: PROPHYLAXIS
     Dosage: UNK

REACTIONS (4)
  - Dizziness [Recovered/Resolved]
  - Nausea [Recovered/Resolved]
  - Dysgeusia [Recovered/Resolved]
  - Coagulopathy [Recovered/Resolved]
